FAERS Safety Report 21093415 (Version 1)
Quarter: 2022Q3

REPORT INFORMATION
  Report Type: Spontaneous
  Country: IN (occurrence: IN)
  Receive Date: 20220718
  Receipt Date: 20220718
  Transmission Date: 20221026
  Serious: Yes (Death)
  Sender: FDA-Public Use
  Company Number: IN-STRIDES ARCOLAB LIMITED-2022SP008897

PATIENT

DRUGS (6)
  1. DEXAMETHASONE [Suspect]
     Active Substance: DEXAMETHASONE
     Indication: Central nervous system lymphoma
     Dosage: 16 MILLIGRAM PER DAY (SCHEDULED FROM DAY 1-29 FOLLOWED BY TAPER)
     Route: 065
  2. METHOTREXATE [Suspect]
     Active Substance: METHOTREXATE
     Indication: Central nervous system lymphoma
     Dosage: 3.5 G/M2, CYCLICAL (HIGH DOSE; 1 CYCLE OF 3.5 G/M2 OVER 2 HOURS, EVERY 14 DAYS)
     Route: 065
  3. VINCRISTINE [Suspect]
     Active Substance: VINCRISTINE
     Indication: Central nervous system lymphoma
     Dosage: 1.4 MILLIGRAM/SQ. METER (CAPPED AT 2 MG; SCHEDULED FOR 5 DOSES)
     Route: 065
  4. PROCARBAZINE [Suspect]
     Active Substance: PROCARBAZINE
     Indication: Central nervous system lymphoma
     Dosage: 100 MILLIGRAM/SQ. METER PER DAY (SCHEDULED FROM DAY 1-7, DAY 29-35 AND DAY 57-63)
     Route: 065
  5. LEUCOVORIN [Concomitant]
     Active Substance: LEUCOVORIN
     Indication: Drug therapy
     Dosage: 10 MILLIGRAM/SQ. METER
     Route: 065
  6. SODIUM BICARBONATE [Concomitant]
     Active Substance: SODIUM BICARBONATE
     Indication: Drug therapy
     Dosage: UNK
     Route: 042

REACTIONS (2)
  - Bacterial sepsis [Fatal]
  - Fungal sepsis [Fatal]
